FAERS Safety Report 7734630-6 (Version None)
Quarter: 2011Q3

REPORT INFORMATION
  Report Type: 
  Country: None (occurrence: None)
  Receive Date: 20110907
  Receipt Date: 20110902
  Transmission Date: 20111222
  Serious: No
  Sender: FDA-Public Use
  Company Number: US-PFIZER INC-2011205736

PATIENT
  Sex: Female

DRUGS (8)
  1. TERBINAFINE [Concomitant]
     Dosage: 1 %, UNK
  2. THYROID TAB [Concomitant]
     Dosage: 60 MG, UNK
  3. ZOLPIDEM [Concomitant]
     Dosage: 10 MG, UNK
  4. CALCIUM [Concomitant]
     Dosage: 500 (NO UNITS PROVIDED)
  5. PROTONIX [Concomitant]
     Dosage: 20 MG, UNK
  6. GENOTROPIN [Suspect]
     Dosage: 0.2 MG, 1X/DAY
     Route: 058
  7. PROAIR HFA [Concomitant]
     Dosage: UNK
  8. MULTIPLE VITAMINS [Concomitant]
     Dosage: UNK

REACTIONS (2)
  - INJECTION SITE HAEMATOMA [None]
  - MYALGIA [None]
